FAERS Safety Report 26173373 (Version 1)
Quarter: 2025Q4

REPORT INFORMATION
  Report Type: Report from Study
  Country: EU (occurrence: EU)
  Receive Date: 20251218
  Receipt Date: 20251218
  Transmission Date: 20260118
  Serious: Yes (Death, Hospitalization, Other)
  Sender: AUROBINDO
  Company Number: EU-STADA-01497164

PATIENT
  Age: 59 Year
  Sex: Male

DRUGS (10)
  1. PIPERACILLIN SODIUM\TAZOBACTAM SODIUM [Suspect]
     Active Substance: PIPERACILLIN SODIUM\TAZOBACTAM SODIUM
     Indication: Cholecystitis acute
     Dosage: 4.5G LOADING DOSE
     Route: 065
  2. PIPERACILLIN SODIUM\TAZOBACTAM SODIUM [Suspect]
     Active Substance: PIPERACILLIN SODIUM\TAZOBACTAM SODIUM
     Dosage: 18 GRAM
     Route: 065
  3. TIGECYCLINE [Concomitant]
     Active Substance: TIGECYCLINE
     Indication: Cholecystitis acute
     Dosage: 100MG LOADING DOSE
     Route: 065
  4. METRONIDAZOLE [Concomitant]
     Active Substance: METRONIDAZOLE
     Indication: Cholecystitis acute
     Dosage: 500 MILLIGRAM, 6 HOURS
     Route: 065
  5. ANIDULAFUNGIN [Concomitant]
     Active Substance: ANIDULAFUNGIN
     Indication: Candida infection
     Dosage: 100 MILLIGRAM, ONCE A DAY
     Route: 065
  6. TIGECYCLINE [Concomitant]
     Active Substance: TIGECYCLINE
     Indication: Cholecystitis acute
     Dosage: 50 MILLIGRAM, TWO TIMES A DAY
     Route: 065
  7. ERAVACYCLINE [Concomitant]
     Active Substance: ERAVACYCLINE
     Indication: Enterobacter infection
     Dosage: 1 MILLIGRAM/KILOGRAM, TWO TIMES A DAY
     Route: 065
  8. CEFIDEROCOL [Concomitant]
     Active Substance: CEFIDEROCOL
     Indication: Enterobacter infection
     Dosage: 2 GRAM LOADING DOSE
     Route: 065
  9. CEFIDEROCOL [Concomitant]
     Active Substance: CEFIDEROCOL
     Indication: Enterobacter infection
     Dosage: 2 GRAM, 6 HOURS VIA CONTINUOUS INFUSION
     Route: 065
  10. ANIDULAFUNGIN [Concomitant]
     Active Substance: ANIDULAFUNGIN
     Indication: Candida infection
     Dosage: 200 MILLIGRAM ON DAY 1
     Route: 065

REACTIONS (2)
  - Hypersensitivity [Fatal]
  - Drug ineffective [Fatal]
